FAERS Safety Report 7904561-7 (Version None)
Quarter: 2011Q4

REPORT INFORMATION
  Report Type: 
  Country: None (occurrence: None)
  Receive Date: 20111109
  Receipt Date: 20111104
  Transmission Date: 20120403
  Serious: Yes (Death, Hospitalization)
  Sender: FDA-Public Use
  Company Number: US-GILEAD-2011-0046358

PATIENT
  Age: 48 Year
  Sex: Female

DRUGS (2)
  1. LETAIRIS [Suspect]
     Indication: PULMONARY HYPERTENSION
     Dosage: 5 MG, UNK
     Route: 048
     Dates: start: 20071001
  2. FLOLAN [Concomitant]
     Indication: PULMONARY HYPERTENSION

REACTIONS (7)
  - DYSPNOEA [None]
  - ANXIETY [None]
  - ASPARTATE AMINOTRANSFERASE INCREASED [None]
  - ALANINE AMINOTRANSFERASE INCREASED [None]
  - AGITATION [None]
  - DEATH [None]
  - BLOOD ALKALINE PHOSPHATASE INCREASED [None]
